FAERS Safety Report 8375185-5 (Version None)
Quarter: 2012Q2

REPORT INFORMATION
  Report Type: 
  Country: None (occurrence: None)
  Receive Date: 20120521
  Receipt Date: 20120421
  Transmission Date: 20120825
  Serious: Yes (Other)
  Sender: FDA-Public Use
  Company Number: PHHY2012DE042051

PATIENT

DRUGS (3)
  1. EVEROLIMUS [Suspect]
     Indication: LIVER TRANSPLANT
     Dosage: 3-8NG/ ML
  2. TACROLIMUS [Concomitant]
     Indication: LIVER TRANSPLANT
     Dosage: 3-5NG/ML
  3. STEROIDS NOS [Concomitant]

REACTIONS (1)
  - HEPATIC ARTERY THROMBOSIS [None]
